FAERS Safety Report 5928801-9 (Version None)
Quarter: 2008Q4

REPORT INFORMATION
  Report Type: 
  Country: None (occurrence: None)
  Receive Date: 20081021
  Receipt Date: 20080919
  Transmission Date: 20090506
  Serious: Yes (Hospitalization)
  Sender: FDA-Public Use
  Company Number: CL002132008

PATIENT
  Age: 68 Year
  Sex: Male

DRUGS (10)
  1. CIPROFLOXACIN [Suspect]
     Indication: CHRONIC OBSTRUCTIVE PULMONARY DISEASE
     Dosage: 1500MG
  2. CIPROFLOXACIN [Suspect]
     Indication: LOWER RESPIRATORY TRACT INFECTION
     Dosage: 1500MG
  3. COLOMYCIN [Concomitant]
  4. DIGOXIN [Concomitant]
  5. FUROSEMIDE [Concomitant]
  6. IRBESARTAN [Concomitant]
  7. PREDNISOLONE [Concomitant]
  8. ALBUTEROL SULFATE [Concomitant]
  9. TIOTROPIUM BROMIDE [Concomitant]
  10. WARFARIN SODIUM [Concomitant]

REACTIONS (1)
  - TENDON RUPTURE [None]
